FAERS Safety Report 19442847 (Version 1)
Quarter: 2021Q2

REPORT INFORMATION
  Report Type: Spontaneous
  Country: US (occurrence: US)
  Receive Date: 20210619
  Receipt Date: 20210619
  Transmission Date: 20210717
  Serious: No
  Sender: FDA-Public Use
  Company Number: None

PATIENT
  Sex: Male
  Weight: 76.05 kg

DRUGS (10)
  1. NORETHINDRONE ACETATE 5MG NDC 68462?304?50, LOT: 20200671 [Suspect]
     Active Substance: NORETHINDRONE ACETATE
     Indication: BLOOD CHOLESTEROL INCREASED
     Dosage: ?          QUANTITY:1 TABLET(S);?
     Route: 048
     Dates: start: 20210611, end: 20210618
  2. GLIMEPIRIDE. [Concomitant]
     Active Substance: GLIMEPIRIDE
  3. PROPRANOLOL ER [Concomitant]
     Active Substance: PROPRANOLOL HYDROCHLORIDE
  4. RAMIPRIL. [Concomitant]
     Active Substance: RAMIPRIL
  5. MEN^S MULTIVITAMIN [Concomitant]
  6. ALLOPURINOL. [Concomitant]
     Active Substance: ALLOPURINOL
  7. AMLODIPINE BESYLATE. [Concomitant]
     Active Substance: AMLODIPINE BESYLATE
  8. VITAMIN D3 [Concomitant]
     Active Substance: CHOLECALCIFEROL
  9. EZETIMIBE SIMVASTATIN [Concomitant]
     Active Substance: EZETIMIBE\SIMVASTATIN
  10. ASPIRIN 81 MG [Concomitant]
     Active Substance: ASPIRIN

REACTIONS (10)
  - Balance disorder [None]
  - Product label confusion [None]
  - Product packaging confusion [None]
  - Wrong product administered [None]
  - Dizziness [None]
  - Product appearance confusion [None]
  - Asthenia [None]
  - Hyperhidrosis [None]
  - Visual impairment [None]
  - Product shape issue [None]
